FAERS Safety Report 8932449 (Version 1)
Quarter: 2012Q4

REPORT INFORMATION
  Report Type: Report from Study
  Country: CA (occurrence: CA)
  Receive Date: 20121128
  Receipt Date: 20121128
  Transmission Date: 20130627
  Serious: Yes (Hospitalization)
  Sender: FDA-Public Use
  Company Number: CA-JNJFOC-20121110586

PATIENT
  Age: 57 None
  Sex: Male
  Weight: 117.94 kg

DRUGS (2)
  1. STELARA [Suspect]
     Indication: PSORIASIS
     Route: 058
  2. STELARA [Suspect]
     Indication: PSORIASIS
     Route: 058

REACTIONS (3)
  - Staphylococcal infection [Unknown]
  - Drug ineffective [Recovered/Resolved]
  - Abscess drainage [Unknown]
